FAERS Safety Report 23743511 (Version 1)
Quarter: 2024Q2

REPORT INFORMATION
  Report Type: Spontaneous
  Country: US (occurrence: None)
  Receive Date: 20240413
  Receipt Date: 20240413
  Transmission Date: 20240715
  Serious: Yes (Hospitalization)
  Sender: FDA-Public Use
  Company Number: None

PATIENT
  Age: 42 Year
  Sex: Female
  Weight: 49.5 kg

DRUGS (1)
  1. SCOPOLAMINE TRANDERMAL SYSTEM [Suspect]
     Active Substance: SCOPOLAMINE
     Dates: start: 20240403, end: 20240405

REACTIONS (4)
  - Anisocoria [None]
  - Mydriasis [None]
  - Pupillary light reflex tests abnormal [None]
  - Visual impairment [None]

NARRATIVE: CASE EVENT DATE: 20240405
